FAERS Safety Report 4886067-5 (Version None)
Quarter: 2006Q1

REPORT INFORMATION
  Report Type: 
  Country: None (occurrence: None)
  Receive Date: 20060118
  Receipt Date: 20060118
  Transmission Date: 20060701
  Serious: Yes (Hospitalization, Other)
  Sender: FDA-Public Use
  Company Number: None

PATIENT
  Sex: Female
  Weight: 84.5 kg

DRUGS (6)
  1. CYTARABINE [Suspect]
     Indication: HAEMATOPOIETIC NEOPLASM
     Dosage: SEE IMAGE
     Route: 042
     Dates: start: 20050902
  2. CYTARABINE [Suspect]
     Indication: HAEMATOPOIETIC NEOPLASM
     Dosage: SEE IMAGE
     Route: 042
     Dates: start: 20050908
  3. DAUNORUBICIN [Suspect]
     Dosage: SEE IMAGE
     Dates: start: 20050902
  4. DAUNORUBICIN [Suspect]
     Dosage: SEE IMAGE
     Dates: start: 20050904
  5. ETOPOSIDE [Suspect]
     Dosage: SEE IMAGE
     Dates: start: 20050902
  6. ETOPOSIDE [Suspect]
     Dosage: SEE IMAGE
     Dates: start: 20050904

REACTIONS (10)
  - ACUTE RESPIRATORY FAILURE [None]
  - BRONCHIAL OBSTRUCTION [None]
  - FEBRILE NEUTROPENIA [None]
  - PLATELET COUNT DECREASED [None]
  - PLEURAL EFFUSION [None]
  - PLEURITIC PAIN [None]
  - PNEUMONIA [None]
  - PROCEDURAL COMPLICATION [None]
  - PULMONARY HAEMORRHAGE [None]
  - STAPHYLOCOCCAL INFECTION [None]
